FAERS Safety Report 5856059-8 (Version None)
Quarter: 2008Q3

REPORT INFORMATION
  Report Type: 
  Country: None (occurrence: None)
  Receive Date: 20080821
  Receipt Date: 20080821
  Transmission Date: 20090109
  Serious: Yes (Hospitalization)
  Sender: FDA-Public Use
  Company Number: None

PATIENT
  Sex: Male
  Weight: 154 kg

DRUGS (6)
  1. VINCRISTINE SULFATE [Suspect]
     Dosage: 4 MG
  2. PREDNISONE TAB [Suspect]
     Dosage: 4032 MG
  3. CYTARABINE [Suspect]
     Dosage: 70 MG
  4. DAUNORUBICIN HCL [Suspect]
     Dosage: 140 MG
  5. METHOTREXATE [Suspect]
     Dosage: 15 MG
  6. PEG-L-ASPARAGINASE (K-H) [Suspect]
     Dosage: 6975 IU

REACTIONS (25)
  - ABDOMINAL PAIN [None]
  - ANURIA [None]
  - CANDIDIASIS [None]
  - CHEST X-RAY ABNORMAL [None]
  - COAGULOPATHY [None]
  - DIALYSIS [None]
  - DISSEMINATED INTRAVASCULAR COAGULATION [None]
  - GASTROINTESTINAL HAEMORRHAGE [None]
  - GENERAL PHYSICAL HEALTH DETERIORATION [None]
  - GENERALISED OEDEMA [None]
  - HEPATIC FAILURE [None]
  - HEPATOMEGALY [None]
  - HYPOGLYCAEMIA [None]
  - HYPOTENSION [None]
  - INTRAVENTRICULAR HAEMORRHAGE [None]
  - LUNG DISORDER [None]
  - MENINGITIS STAPHYLOCOCCAL [None]
  - METABOLIC ACIDOSIS [None]
  - MULTI-ORGAN FAILURE [None]
  - PANCREATITIS [None]
  - POST PROCEDURAL HAEMORRHAGE [None]
  - POSTOPERATIVE WOUND INFECTION [None]
  - RENAL FAILURE [None]
  - VENOOCCLUSIVE LIVER DISEASE [None]
  - WEIGHT INCREASED [None]
